FAERS Safety Report 6333369-1 (Version None)
Quarter: 2009Q3

REPORT INFORMATION
  Report Type: 
  Country: None (occurrence: None)
  Receive Date: 20090828
  Receipt Date: 20090820
  Transmission Date: 20100115
  Serious: Yes (Other)
  Sender: FDA-Public Use
  Company Number: GB-ROCHE-652356

PATIENT
  Age: 1 Year
  Sex: Male

DRUGS (2)
  1. TAMIFLU [Suspect]
     Indication: DRUG USE FOR UNKNOWN INDICATION
     Dosage: DRUG WITHDRAWN
     Route: 065
     Dates: start: 20090801, end: 20090801
  2. ACETAMINOPHEN [Concomitant]

REACTIONS (2)
  - CONFUSIONAL STATE [None]
  - INSOMNIA [None]
